FAERS Safety Report 7501891-8 (Version None)
Quarter: 2011Q2

REPORT INFORMATION
  Report Type: 
  Country: None (occurrence: None)
  Receive Date: 20110525
  Receipt Date: 20110513
  Transmission Date: 20111010
  Serious: Yes (Hospitalization)
  Sender: FDA-Public Use
  Company Number: US-JNJFOC-20110506956

PATIENT
  Sex: Male
  Weight: 85.73 kg

DRUGS (5)
  1. DURAGESIC-100 [Suspect]
     Route: 062
  2. DURAGESIC-100 [Suspect]
     Route: 062
  3. DURAGESIC-100 [Suspect]
     Route: 062
     Dates: start: 20060101, end: 20060101
  4. DURAGESIC-100 [Suspect]
     Indication: BACK PAIN
     Route: 062
     Dates: start: 20030101, end: 20060101
  5. DURAGESIC-100 [Suspect]
     Route: 062
     Dates: start: 20060101

REACTIONS (4)
  - INTERVERTEBRAL DISC PROTRUSION [None]
  - FEELING ABNORMAL [None]
  - DRUG DOSE OMISSION [None]
  - PAIN [None]
